FAERS Safety Report 4522086-6 (Version None)
Quarter: 2004Q4

REPORT INFORMATION
  Report Type: 
  Country: None (occurrence: None)
  Receive Date: 20041209
  Receipt Date: 20041130
  Transmission Date: 20050328
  Serious: Yes (Life-Threatening, Hospitalization, Disabling)
  Sender: FDA-Public Use
  Company Number: US-MERCK-0412USA00004

PATIENT
  Age: 49 Year
  Sex: Male

DRUGS (6)
  1. VIOXX [Suspect]
     Route: 048
  2. COREG [Concomitant]
     Route: 048
  3. MONOPRIL [Concomitant]
     Route: 065
  4. ASPIRIN [Concomitant]
     Route: 065
  5. ROBAXIN [Concomitant]
     Route: 048
  6. LASIX [Concomitant]
     Route: 065

REACTIONS (1)
  - MYOCARDIAL INFARCTION [None]
